FAERS Safety Report 6958093-3 (Version None)
Quarter: 2010Q3

REPORT INFORMATION
  Report Type: 
  Country: None (occurrence: None)
  Receive Date: 20100831
  Receipt Date: 20100826
  Transmission Date: 20110219
  Serious: Yes (Hospitalization, Other)
  Sender: FDA-Public Use
  Company Number: DE-ABBOTT-10P-062-0661557-00

PATIENT
  Sex: Male

DRUGS (6)
  1. NORVIR [Suspect]
     Indication: HIV INFECTION
     Dates: start: 20090420, end: 20100824
  2. NORVIR [Suspect]
     Indication: ANTIRETROVIRAL THERAPY
  3. INVIRASE [Suspect]
     Indication: PRODUCT USED FOR UNKNOWN INDICATION
  4. SIMVASTATIN [Suspect]
     Indication: PRODUCT USED FOR UNKNOWN INDICATION
     Dosage: ESCALATED TO 40MG ON 17 MAY 2010.
     Dates: start: 20100501, end: 20100516
  5. SIMVASTATIN [Suspect]
     Dosage: ESCALATED TO 40MG ON 17 MAY 2010.
     Dates: start: 20100517
  6. MARCUMAR [Concomitant]
     Indication: PRODUCT USED FOR UNKNOWN INDICATION

REACTIONS (2)
  - RENAL FAILURE [None]
  - RHABDOMYOLYSIS [None]
